FAERS Safety Report 8490042-1 (Version None)
Quarter: 2012Q2

REPORT INFORMATION
  Report Type: 
  Country: None (occurrence: None)
  Receive Date: 20120626
  Receipt Date: 20120611
  Transmission Date: 20120825
  Serious: Yes (Hospitalization, Disabling, Other)
  Sender: FDA-Public Use
  Company Number: 2011MA014744

PATIENT
  Age: 52 Year
  Sex: Male
  Weight: 158.759 kg

DRUGS (14)
  1. NOVOLOG [Concomitant]
  2. CYMBALTA [Concomitant]
  3. AVELOX [Concomitant]
  4. PREDNISONE [Concomitant]
  5. NEXIUM [Concomitant]
  6. LANTUS [Concomitant]
  7. BUPROPION HCL [Concomitant]
  8. PAXIL [Concomitant]
  9. AMITIZA [Concomitant]
  10. ZOLOFT [Concomitant]
  11. ABILIFY [Concomitant]
  12. CIPROFLOXACIN HCL [Concomitant]
  13. METOCLOPRAMIDE [Suspect]
     Indication: GASTROOESOPHAGEAL REFLUX DISEASE
     Dates: start: 20010101, end: 20091126
  14. JANUVIA [Concomitant]

REACTIONS (21)
  - DIVERTICULUM [None]
  - HYPERSOMNIA [None]
  - DECREASED INTEREST [None]
  - VASCULAR OCCLUSION [None]
  - ECONOMIC PROBLEM [None]
  - HYPHAEMA [None]
  - CHEST PAIN [None]
  - GOUT [None]
  - HYPERTENSION [None]
  - BALANCE DISORDER [None]
  - GASTROOESOPHAGEAL REFLUX DISEASE [None]
  - RENAL DISORDER [None]
  - DIABETIC GASTROPARESIS [None]
  - DIABETIC COMPLICATION [None]
  - DEPRESSION [None]
  - DYSPNOEA [None]
  - IRRITABLE BOWEL SYNDROME [None]
  - AKATHISIA [None]
  - BLINDNESS [None]
  - TARDIVE DYSKINESIA [None]
  - EMOTIONAL DISORDER [None]
